FAERS Safety Report 9418260 (Version 1)
Quarter: 2013Q3

REPORT INFORMATION
  Report Type: Spontaneous
  Country: US (occurrence: US)
  Receive Date: 20130724
  Receipt Date: 20130724
  Transmission Date: 20140515
  Serious: Yes (Hospitalization)
  Sender: FDA-Public Use
  Company Number: US-RB-056352-13

PATIENT
  Age: 73 Year
  Sex: Female

DRUGS (2)
  1. GENERIC BUPRENORPHINE NALOXONE [Suspect]
     Indication: DRUG DEPENDENCE
     Dosage: DOSING DETAILS UNKNOWN; MEDICALLY TAPERED FOR 2 WEEKS IN 2013 BEFORE STOPPING
     Route: 060
     Dates: end: 201303
  2. SUBOXONE FILM [Suspect]
     Indication: DRUG DEPENDENCE
     Dosage: SUBOXONE FILM
     Route: 060
     Dates: start: 2013

REACTIONS (3)
  - Gastrointestinal disorder [Not Recovered/Not Resolved]
  - Gastrointestinal hypomotility [Not Recovered/Not Resolved]
  - Vomiting [Recovered/Resolved]
